FAERS Safety Report 6874818-X (Version None)
Quarter: 2010Q3

REPORT INFORMATION
  Report Type: 
  Country: None (occurrence: None)
  Receive Date: 20100723
  Receipt Date: 20100709
  Transmission Date: 20110219
  Serious: Yes (Death, Life-Threatening)
  Sender: FDA-Public Use
  Company Number: 2010002856

PATIENT
  Age: 79 Year
  Sex: Male
  Weight: 59 kg

DRUGS (8)
  1. ERLOTINIB (ERLOTINIB) (TABLET) (ERLOTINIB) [Suspect]
     Indication: LUNG SQUAMOUS CELL CARCINOMA STAGE UNSPECIFIED
     Dosage: (150 MG, QD), ORAL
     Route: 048
     Dates: start: 20090219, end: 20090317
  2. PREDNISOLONE [Suspect]
     Dosage: (5 MG, QD), ORAL
     Route: 048
     Dates: start: 20090311, end: 20090317
  3. LOXONIN (LOXOPROFEN SODIUM) [Suspect]
     Dosage: (180 MG, QD), ORAL
     Route: 048
     Dates: start: 20100311, end: 20100317
  4. AMARYL [Concomitant]
  5. MICARDIS [Concomitant]
  6. AMLODIPINE [Concomitant]
  7. DEPAS (ETIZOLAM) [Concomitant]
  8. MUCOSTA (REBAMIPIDE) [Concomitant]

REACTIONS (5)
  - DECREASED APPETITE [None]
  - DRUG HYPERSENSITIVITY [None]
  - GASTRIC ULCER [None]
  - METASTASES TO BONE [None]
  - PNEUMONIA ASPIRATION [None]
